FAERS Safety Report 4764193-9 (Version None)
Quarter: 2005Q3

REPORT INFORMATION
  Report Type: 
  Country: None (occurrence: None)
  Receive Date: 20050902
  Receipt Date: 20050719
  Transmission Date: 20060218
  Serious: No
  Sender: FDA-Public Use
  Company Number: MPS1-10409

PATIENT
  Age: 30 Year
  Sex: Female
  Weight: 30.8446 kg

DRUGS (2)
  1. ALDURAZYME [Suspect]
     Dosage: 17.4 MG IV
     Route: 042
     Dates: start: 20050603
  2. LASIX [Concomitant]

REACTIONS (2)
  - DYSPNOEA [None]
  - OEDEMA PERIPHERAL [None]
